FAERS Safety Report 11193360 (Version 3)
Quarter: 2015Q3

REPORT INFORMATION
  Report Type: Spontaneous
  Country: US (occurrence: US)
  Receive Date: 20150616
  Receipt Date: 20150728
  Transmission Date: 20151125
  Serious: Yes (Hospitalization)
  Sender: FDA-Public Use
  Company Number: US-UNITED THERAPEUTICS-UNT-2015-006893

PATIENT
  Age: 69 Year
  Sex: Female
  Weight: 49.43 kg

DRUGS (2)
  1. REMODULIN [Suspect]
     Active Substance: TREPROSTINIL
     Indication: PULMONARY ARTERIAL HYPERTENSION
     Dosage: 0.030 ?G/KG, CONTINUING
     Route: 041
     Dates: start: 20130829
  2. OPSUMIT [Concomitant]
     Active Substance: MACITENTAN
     Indication: PRODUCT USED FOR UNKNOWN INDICATION

REACTIONS (8)
  - Bronchitis viral [Unknown]
  - Chronic obstructive pulmonary disease [Unknown]
  - Renal impairment [Recovered/Resolved]
  - Septic shock [Unknown]
  - Chronic respiratory failure [Recovered/Resolved]
  - Infection [Recovered/Resolved]
  - Right ventricular failure [Not Recovered/Not Resolved]
  - Weight increased [Unknown]

NARRATIVE: CASE EVENT DATE: 201506
